FAERS Safety Report 7166526-5 (Version None)
Quarter: 2010Q4

REPORT INFORMATION
  Report Type: 
  Country: None (occurrence: None)
  Receive Date: 20101216
  Receipt Date: 20101202
  Transmission Date: 20110411
  Serious: Yes (Other)
  Sender: FDA-Public Use
  Company Number: PHHY2010US82437

PATIENT
  Sex: Male

DRUGS (1)
  1. DIOVAN HCT [Suspect]
     Dosage: 160/12.5 MG

REACTIONS (5)
  - ERYTHEMA [None]
  - GENITAL SWELLING [None]
  - OROPHARYNGEAL BLISTERING [None]
  - PENILE BLISTER [None]
  - PRURITUS GENITAL [None]
